FAERS Safety Report 11367923 (Version 1)
Quarter: 2015Q3

REPORT INFORMATION
  Report Type: Spontaneous
  Country: US (occurrence: None)
  Receive Date: 20150810
  Receipt Date: 20150810
  Transmission Date: 20151125
  Serious: Yes (Other)
  Sender: FDA-Public Use
  Company Number: 2015RIT000038

PATIENT
  Age: 4 Year
  Sex: Male

DRUGS (3)
  1. ALBUTEROL SULFATE. [Suspect]
     Active Substance: ALBUTEROL SULFATE
     Indication: ASTHMA
     Dosage: TRANSITIONED FROM CONTINOUS TO INTERMITTENT, INSUFFLATION
  2. METHYLPREDNISOLONE. [Suspect]
     Active Substance: METHYLPREDNISOLONE
     Route: 042
  3. IPRATROPIUM (IPRATROPIUM) [Concomitant]

REACTIONS (1)
  - Accelerated idioventricular rhythm [None]
